FAERS Safety Report 13898280 (Version 1)
Quarter: 2017Q3

REPORT INFORMATION
  Report Type: Spontaneous
  Country: US (occurrence: US)
  Receive Date: 20170824
  Receipt Date: 20170824
  Transmission Date: 20171127
  Serious: Yes (Other)
  Sender: FDA-Public Use
  Company Number: US-ASTELLAS-2017US027955

PATIENT
  Age: 75 Year
  Sex: Female

DRUGS (1)
  1. MYRBETRIQ [Suspect]
     Active Substance: MIRABEGRON
     Indication: URINARY INCONTINENCE
     Route: 048
     Dates: start: 2015, end: 2015

REACTIONS (8)
  - Spinal operation [Unknown]
  - Back injury [Unknown]
  - Intentional product misuse [Unknown]
  - Fall [Unknown]
  - Fall [Unknown]
  - Vertigo [Unknown]
  - Back injury [Unknown]
  - Abdominal pain upper [Unknown]

NARRATIVE: CASE EVENT DATE: 201502
